FAERS Safety Report 5367349-X (Version None)
Quarter: 2007Q2

REPORT INFORMATION
  Report Type: 
  Country: None (occurrence: None)
  Receive Date: 20070622
  Receipt Date: 20060712
  Transmission Date: 20071010
  Serious: No
  Sender: FDA-Public Use
  Company Number: US-ASTRAZENECA-2006UW14357

PATIENT
  Age: 81 Year
  Sex: Male
  Weight: 90.7 kg

DRUGS (2)
  1. PULMICORT RESPULES [Suspect]
     Indication: CHRONIC OBSTRUCTIVE PULMONARY DISEASE
     Route: 055
     Dates: start: 20060601
  2. HYTRIN [Concomitant]
     Indication: BLOOD PRESSURE

REACTIONS (1)
  - DEAFNESS [None]
